FAERS Safety Report 5217920-0 (Version None)
Quarter: 2007Q1

REPORT INFORMATION
  Report Type: 
  Country: None (occurrence: None)
  Receive Date: 20061130
  Receipt Date: 20060815
  Transmission Date: 20070707
  Serious: Yes (Hospitalization)
  Sender: FDA-Public Use
  Company Number: US200607000210

PATIENT
  Sex: Male
  Weight: 89.8 kg

DRUGS (2)
  1. ZYPREXA [Suspect]
     Indication: DRUG USE FOR UNKNOWN INDICATION
     Dosage: 10 MG, UNK, ORAL
     Route: 048
     Dates: start: 20040501, end: 20040901
  2. HALOPERIDOL [Concomitant]

REACTIONS (2)
  - DIABETES MELLITUS [None]
  - METABOLIC DISORDER [None]
